FAERS Safety Report 18414930 (Version 1)
Quarter: 2020Q4

REPORT INFORMATION
  Report Type: Spontaneous
  Country: US (occurrence: US)
  Receive Date: 20201022
  Receipt Date: 20201022
  Transmission Date: 20210114
  Serious: No
  Sender: FDA-Public Use
  Company Number: None

PATIENT
  Age: 66 Year
  Sex: Female
  Weight: 137.9 kg

DRUGS (1)
  1. REMDESIVIR. [Suspect]
     Active Substance: REMDESIVIR
     Indication: COVID-19
     Route: 042
     Dates: start: 20200830, end: 20200905

REACTIONS (3)
  - Liver function test increased [None]
  - Inappropriate schedule of product administration [None]
  - Wrong technique in product usage process [None]

NARRATIVE: CASE EVENT DATE: 20200902
